FAERS Safety Report 9991710 (Version 3)
Quarter: 2014Q1

REPORT INFORMATION
  Report Type: Spontaneous
  Country: IT (occurrence: IT)
  Receive Date: 20140310
  Receipt Date: 20140325
  Transmission Date: 20141002
  Serious: Yes (Death)
  Sender: FDA-Public Use
  Company Number: IT-TEVA-465016ISR

PATIENT
  Age: 55 Year
  Sex: Female

DRUGS (5)
  1. CISPLATINO TEVA ITALIA [Suspect]
     Indication: LUNG NEOPLASM MALIGNANT
     Dosage: 70 MILLIGRAM DAILY; CYCLE 1
     Route: 042
     Dates: start: 20131104
  2. CISPLATINO TEVA ITALIA [Suspect]
     Dosage: 80 MILLIGRAM DAILY; CYCLE 2
     Route: 042
     Dates: start: 20131130
  3. ALIMTA [Suspect]
     Indication: LUNG NEOPLASM MALIGNANT
     Dosage: 500 MILLIGRAM DAILY;
     Route: 042
     Dates: start: 20131104
  4. ALIMTA [Suspect]
     Dosage: 600 MILLIGRAM DAILY;
     Route: 042
     Dates: start: 20131130
  5. ACIDO FOLICO [Concomitant]

REACTIONS (2)
  - Bone marrow failure [Fatal]
  - Circulatory collapse [Fatal]
